FAERS Safety Report 13340644 (Version 1)
Quarter: 2017Q1

REPORT INFORMATION
  Report Type: Spontaneous
  Country: US (occurrence: US)
  Receive Date: 20170315
  Receipt Date: 20170315
  Transmission Date: 20170428
  Serious: Yes (Death, Life-Threatening, Other)
  Sender: FDA-Public Use
  Company Number: None

PATIENT
  Age: 66 Year
  Sex: Male
  Weight: 93.15 kg

DRUGS (14)
  1. COQ10 [Concomitant]
     Active Substance: UBIDECARENONE
  2. SYNTHETIC [Concomitant]
  3. DAILY VITAMIN [Concomitant]
     Active Substance: VITAMINS
  4. DULOXETINE HCL DR 30 MG [Suspect]
     Active Substance: DULOXETINE HYDROCHLORIDE
     Indication: PRODUCT USED FOR UNKNOWN INDICATION
     Dosage: ?          QUANTITY:30 CAPSULE(S);?
     Route: 048
     Dates: start: 20160901, end: 20170313
  5. ASA [Concomitant]
     Active Substance: ASPIRIN
  6. CHLORITHALIDOMNE [Concomitant]
  7. POTASSIUM CITRATE. [Concomitant]
     Active Substance: POTASSIUM CITRATE
  8. LIPITOR [Concomitant]
     Active Substance: ATORVASTATIN CALCIUM
  9. FENOFIBRATE. [Concomitant]
     Active Substance: FENOFIBRATE
  10. LOSARTIN [Concomitant]
     Active Substance: LOSARTAN
  11. VICTORIA [Concomitant]
  12. ATENOLOL. [Concomitant]
     Active Substance: ATENOLOL
  13. ALLOPURINOL. [Concomitant]
     Active Substance: ALLOPURINOL
  14. MULTIVITAMIN [Concomitant]
     Active Substance: VITAMINS

REACTIONS (3)
  - Serotonin syndrome [None]
  - Musculoskeletal pain [None]
  - Pain in extremity [None]

NARRATIVE: CASE EVENT DATE: 20170313
